FAERS Safety Report 4719386-3 (Version None)
Quarter: 2005Q3

REPORT INFORMATION
  Report Type: 
  Country: None (occurrence: None)
  Receive Date: 20050719
  Receipt Date: 20050719
  Transmission Date: 20060218
  Serious: Yes (Hospitalization)
  Sender: FDA-Public Use
  Company Number: None

PATIENT
  Sex: Male

DRUGS (20)
  1. ASPIRIN [Suspect]
     Indication: PROPHYLAXIS
     Dosage: 81 MG DAILY ORAL
     Route: 048
  2. HEPARIN [Suspect]
     Indication: THROMBOSIS PROPHYLAXIS
     Dosage: 5000 UNITS Q8HR SUBCUTANEOUS
     Route: 058
  3. FERROUS SULFATE TAB [Concomitant]
  4. OMEPRAZOLE [Concomitant]
  5. TRAZODONE HCL [Concomitant]
  6. SIMVASTATIN [Concomitant]
  7. SENNOSIDES [Concomitant]
  8. MULTIVITAMINS/MINERALS [Concomitant]
  9. METOPROLOL [Concomitant]
  10. LISINOPRIL [Concomitant]
  11. LACTULOSE [Concomitant]
  12. IPRATROPIUM BROMIDE [Concomitant]
  13. INSULIN [Concomitant]
  14. HYDRALAZINE [Concomitant]
  15. DOCUSATE [Concomitant]
  16. DARBEPOETIN [Concomitant]
  17. CLONIDINE HCL [Concomitant]
  18. AMLODIPINE [Concomitant]
  19. ALBUTEROL [Concomitant]
  20. OXYCODONE [Concomitant]

REACTIONS (2)
  - HAEMOGLOBIN DECREASED [None]
  - MELAENA [None]
